FAERS Safety Report 4850441-3 (Version None)
Quarter: 2005Q4

REPORT INFORMATION
  Report Type: 
  Country: None (occurrence: None)
  Receive Date: 20051123
  Receipt Date: 20051021
  Transmission Date: 20060501
  Serious: No
  Sender: FDA-Public Use
  Company Number: TPA2005A01302

PATIENT
  Age: 50 Year
  Sex: Female
  Weight: 72.5755 kg

DRUGS (4)
  1. ROZEREM [Suspect]
     Indication: INSOMNIA
     Dosage: 8 MG, QHS, PER ORAL
     Route: 048
     Dates: start: 20050830
  2. ACTIVELLA (OESTRANORM) (POULTICE OR PATCH) [Concomitant]
  3. ELAVIL [Concomitant]
  4. LUNESTA (ESZOPICLONE) (10 MILLIGRAM) [Concomitant]

REACTIONS (1)
  - INITIAL INSOMNIA [None]
